FAERS Safety Report 24628594 (Version 1)
Quarter: 2024Q4

REPORT INFORMATION
  Report Type: Spontaneous
  Country: CN (occurrence: CN)
  Receive Date: 20241117
  Receipt Date: 20241117
  Transmission Date: 20250115
  Serious: Yes (Other)
  Sender: BEIGENE
  Company Number: CN-BEIGENE-BGN-2024-018082

PATIENT

DRUGS (5)
  1. TISLELIZUMAB [Suspect]
     Active Substance: TISLELIZUMAB
     Indication: Squamous cell carcinoma of lung
     Dosage: 200 MILLIGRAM
     Route: 041
     Dates: start: 20240904
  2. CISPLATIN [Suspect]
     Active Substance: CISPLATIN
     Indication: Squamous cell carcinoma of lung
     Dosage: 40 MILLIGRAM
     Route: 041
     Dates: start: 20240905
  3. PACLITAXEL [Suspect]
     Active Substance: PACLITAXEL
     Indication: Squamous cell carcinoma of lung
     Dosage: 400 MILLIGRAM
     Route: 041
     Dates: start: 20240905
  4. CINOBUFAGIN [Concomitant]
     Active Substance: CINOBUFAGIN
     Dosage: 0.5 GRAM
     Route: 048
     Dates: start: 20240904, end: 20240912
  5. COIX LACRYMA-JOBI VAR. MA-YUEN SEED [Concomitant]
     Active Substance: COIX LACRYMA-JOBI VAR. MA-YUEN SEED
     Dosage: 200 MILLILITER
     Dates: start: 20240904, end: 20240910

REACTIONS (1)
  - Myelosuppression [Recovered/Resolved]

NARRATIVE: CASE EVENT DATE: 20240910
